FAERS Safety Report 25371137 (Version 1)
Quarter: 2025Q2

REPORT INFORMATION
  Report Type: Report from Study
  Country: US (occurrence: US)
  Receive Date: 20250529
  Receipt Date: 20250529
  Transmission Date: 20250716
  Serious: Yes (Hospitalization)
  Sender: JOHNSON AND JOHNSON
  Company Number: US-JNJFOC-20250526926

PATIENT
  Sex: Female

DRUGS (1)
  1. UPTRAVI [Suspect]
     Active Substance: SELEXIPAG
     Indication: Pulmonary arterial hypertension
     Route: 048
     Dates: start: 2023

REACTIONS (8)
  - Nerve compression [Unknown]
  - Illness [Unknown]
  - Pain [Unknown]
  - Knuckle pads [Unknown]
  - Joint stiffness [Unknown]
  - Headache [Unknown]
  - Joint stiffness [Unknown]
  - Peripheral swelling [Unknown]
